FAERS Safety Report 7048515-4 (Version None)
Quarter: 2010Q4

REPORT INFORMATION
  Report Type: 
  Country: None (occurrence: None)
  Receive Date: 20101007
  Receipt Date: 20100924
  Transmission Date: 20110411
  Serious: Yes (Hospitalization)
  Sender: FDA-Public Use
  Company Number: MPS1-1000367

PATIENT
  Age: 16 Month
  Sex: Male
  Weight: 10 kg

DRUGS (1)
  1. ALDURAZYME [Suspect]
     Indication: MUCOPOLYSACCHARIDOSIS
     Dosage: 5.8 MG, INTRAVENOUS
     Route: 042
     Dates: start: 20100610

REACTIONS (10)
  - BONE MARROW TRANSPLANT [None]
  - CAPILLARY NAIL REFILL TEST ABNORMAL [None]
  - CATHETER SITE INFECTION [None]
  - DEVICE OCCLUSION [None]
  - FEELING JITTERY [None]
  - IRRITABILITY [None]
  - PALLOR [None]
  - PYREXIA [None]
  - STAPHYLOCOCCAL INFECTION [None]
  - TACHYCARDIA [None]
